FAERS Safety Report 19143932 (Version 1)
Quarter: 2021Q2

REPORT INFORMATION
  Report Type: Spontaneous
  Country: NL (occurrence: NL)
  Receive Date: 20210416
  Receipt Date: 20210416
  Transmission Date: 20210717
  Serious: Yes (Hospitalization)
  Sender: FDA-Public Use
  Company Number: NL-TEVA-2021-NL-1900848

PATIENT
  Sex: Male

DRUGS (3)
  1. CITALOPRAM TABLET OMHULD 20MG / BRAND NAME NOT SPECIFIED [Suspect]
     Active Substance: CITALOPRAM HYDROBROMIDE
     Indication: ANXIETY DISORDER
     Dosage: 20 MILLIGRAM DAILY; THERAPY START DATE AND END DATE : ASKED BUT UNKNOWN
  2. CONCERTA [Suspect]
     Active Substance: METHYLPHENIDATE HYDROCHLORIDE
     Indication: ATTENTION DEFICIT HYPERACTIVITY DISORDER
     Dosage: 27 MILLIGRAM DAILY;
  3. LABETALOL TABLET 200MG / BRAND NAME NOT SPECIFIED [Suspect]
     Active Substance: LABETALOL\LABETALOL HYDROCHLORIDE
     Indication: HYPERTENSION
     Dosage: 600 MILLIGRAM DAILY; THERAPY START DATE AND END DATE : ASKED BUT UNKNOWN

REACTIONS (5)
  - Maternal exposure during pregnancy [Unknown]
  - Neonatal hypoxia [Unknown]
  - Irritability [Unknown]
  - Hypotonia neonatal [Recovering/Resolving]
  - Pallor [Recovering/Resolving]
